FAERS Safety Report 5467755-9 (Version None)
Quarter: 2007Q3

REPORT INFORMATION
  Report Type: 
  Country: None (occurrence: None)
  Receive Date: 20070926
  Receipt Date: 20070919
  Transmission Date: 20080115
  Serious: Yes (Other)
  Sender: FDA-Public Use
  Company Number: PHBS2007JP12099

PATIENT
  Age: 60 Year
  Sex: Male
  Weight: 68 kg

DRUGS (2)
  1. VOLTAREN [Suspect]
     Indication: PAIN
     Dosage: 25 MG/DAY
     Route: 054
     Dates: start: 20070717, end: 20070717
  2. SULPERAZON [Suspect]
     Dosage: 1 G, UNK
     Route: 041
     Dates: start: 20070717

REACTIONS (1)
  - SHOCK [None]
